FAERS Safety Report 9672310 (Version 1)
Quarter: 2013Q4

REPORT INFORMATION
  Report Type: Spontaneous
  Country: IT (occurrence: IT)
  Receive Date: 20131106
  Receipt Date: 20131106
  Transmission Date: 20140711
  Serious: Yes (Other)
  Sender: FDA-Public Use
  Company Number: IT-TEVA-440844ISR

PATIENT
  Age: 53 Year
  Sex: Male
  Weight: 95 kg

DRUGS (2)
  1. METOTREXATO [Suspect]
     Indication: PSORIATIC ARTHROPATHY
     Dosage: 15 MILLIGRAM DAILY;
     Route: 030
     Dates: start: 20111107, end: 20120301
  2. RANITIDINA [Concomitant]

REACTIONS (2)
  - Hypotonia [Recovered/Resolved]
  - Atrophy [Recovered/Resolved]
